FAERS Safety Report 7335040-6 (Version None)
Quarter: 2011Q1

REPORT INFORMATION
  Report Type: 
  Country: None (occurrence: None)
  Receive Date: 20110307
  Receipt Date: 20110301
  Transmission Date: 20110831
  Serious: Yes (Other)
  Sender: FDA-Public Use
  Company Number: DE-ROCHE-763433

PATIENT
  Sex: Male

DRUGS (2)
  1. AVASTIN [Suspect]
     Indication: RECTAL CANCER RECURRENT
     Dosage: 22 CYCLES
     Route: 065
  2. XELODA [Suspect]
     Indication: RECTAL CANCER RECURRENT
     Dosage: 22 CYCLES
     Route: 065

REACTIONS (1)
  - POLYCYTHAEMIA [None]
